FAERS Safety Report 4781346-4 (Version None)
Quarter: 2005Q3

REPORT INFORMATION
  Report Type: 
  Country: None (occurrence: None)
  Receive Date: 20050914
  Receipt Date: 20050819
  Transmission Date: 20060218
  Serious: No
  Sender: FDA-Public Use
  Company Number: IND-AE-05-SAN-055

PATIENT
  Age: 44 Year
  Sex: Female

DRUGS (1)
  1. SANCTURA [Suspect]
     Indication: HYPERTONIC BLADDER
     Dosage: BLISTER PK - BID; ORAL
     Route: 048

REACTIONS (1)
  - HYPOAESTHESIA [None]
